FAERS Safety Report 11804140 (Version 1)
Quarter: 2015Q4

REPORT INFORMATION
  Report Type: Spontaneous
  Country: US (occurrence: US)
  Receive Date: 20151204
  Receipt Date: 20151204
  Transmission Date: 20160305
  Serious: No
  Sender: FDA-Public Use
  Company Number: US-BAUSCH-BL-2014-009399

PATIENT
  Sex: Male

DRUGS (3)
  1. XENAZINE [Suspect]
     Active Substance: TETRABENAZINE
     Dosage: CURRENTLY TAKING 1 TABLET DAILY
  2. XENAZINE [Suspect]
     Active Substance: TETRABENAZINE
     Indication: PARALYSIS
     Dates: start: 201411
  3. XENAZINE [Suspect]
     Active Substance: TETRABENAZINE
     Indication: CHOREA
     Route: 048
     Dates: start: 20141026

REACTIONS (1)
  - Musculoskeletal stiffness [Recovered/Resolved]
